FAERS Safety Report 17465449 (Version 1)
Quarter: 2020Q1

REPORT INFORMATION
  Report Type: Spontaneous
  Country: US (occurrence: US)
  Receive Date: 20200227
  Receipt Date: 20200227
  Transmission Date: 20200409
  Serious: No
  Sender: FDA-Public Use
  Company Number: US-ASTRAZENECA-2020SE17904

PATIENT
  Age: 19562 Day
  Sex: Male
  Weight: 99.3 kg

DRUGS (14)
  1. TESTOSTERONE. [Concomitant]
     Active Substance: TESTOSTERONE
  2. ATORVASTATIN [Concomitant]
     Active Substance: ATORVASTATIN
  3. LYNPARZA [Suspect]
     Active Substance: OLAPARIB
     Indication: BRAIN CANCER METASTATIC
     Dosage: 200 MG EVER 8 HOURS FOR A DAILY DOSE OF 600 MG
     Route: 048
     Dates: start: 20200119
  4. FAMOTIDINE. [Concomitant]
     Active Substance: FAMOTIDINE
  5. TRAZODONE [Concomitant]
     Active Substance: TRAZODONE HYDROCHLORIDE
  6. LISONOPRIL [Concomitant]
  7. PREDNISONE. [Concomitant]
     Active Substance: PREDNISONE
  8. MELOXICAM. [Concomitant]
     Active Substance: MELOXICAM
  9. ZYLOPRAM [Concomitant]
  10. LYNPARZA [Suspect]
     Active Substance: OLAPARIB
     Indication: BRAIN CANCER METASTATIC
     Dosage: 200 MG EVERY 10 HOURS FOR A DAILY DOSE OF 400 MG
     Route: 048
     Dates: start: 202001
  11. HYDROCHLORTHIAZIDE [Concomitant]
     Active Substance: HYDROCHLOROTHIAZIDE
  12. KEPPRA [Concomitant]
     Active Substance: LEVETIRACETAM
  13. MAGOX [Concomitant]
  14. LEVOTHYROXINE. [Concomitant]
     Active Substance: LEVOTHYROXINE

REACTIONS (9)
  - Abdominal discomfort [Unknown]
  - Malaise [Recovering/Resolving]
  - Dry mouth [Recovered/Resolved]
  - Nausea [Unknown]
  - Off label use [Unknown]
  - Pollakiuria [Recovered/Resolved]
  - Fatigue [Unknown]
  - Incorrect dose administered [Unknown]
  - Therapeutic response unexpected [Unknown]

NARRATIVE: CASE EVENT DATE: 20200211
